FAERS Safety Report 10488095 (Version 1)
Quarter: 2014Q4

REPORT INFORMATION
  Report Type: Spontaneous
  Country: CA (occurrence: CA)
  Receive Date: 20141002
  Receipt Date: 20141002
  Transmission Date: 20150528
  Serious: Yes (Hospitalization)
  Sender: FDA-Public Use
  Company Number: PHHY2014CA126028

PATIENT
  Age: 65 Year
  Sex: Male

DRUGS (1)
  1. WARFARIN [Suspect]
     Active Substance: WARFARIN
     Indication: ATRIAL FIBRILLATION

REACTIONS (8)
  - Pain in extremity [Recovering/Resolving]
  - Vascular calcification [Unknown]
  - International normalised ratio abnormal [Unknown]
  - Calciphylaxis [Unknown]
  - Extremity necrosis [Recovering/Resolving]
  - Paraesthesia [Recovering/Resolving]
  - Ischaemia [Recovering/Resolving]
  - Peripheral arterial occlusive disease [Unknown]
